FAERS Safety Report 6383673-6 (Version None)
Quarter: 2009Q4

REPORT INFORMATION
  Report Type: 
  Country: None (occurrence: None)
  Receive Date: 20091001
  Receipt Date: 20090925
  Transmission Date: 20100525
  Serious: No
  Sender: FDA-Public Use
  Company Number: US-JNJFOC-20090908255

PATIENT
  Sex: Female
  Weight: 45.36 kg

DRUGS (8)
  1. DURAGESIC-100 [Suspect]
     Route: 062
     Dates: end: 20090924
  2. DURAGESIC-100 [Suspect]
     Indication: BACK PAIN
     Route: 062
     Dates: end: 20090924
  3. DURAGESIC-100 [Suspect]
     Route: 062
     Dates: start: 20090921, end: 20090924
  4. DURAGESIC-100 [Suspect]
     Route: 062
     Dates: start: 20090921, end: 20090924
  5. LORTAB [Concomitant]
     Indication: PAIN
     Dosage: DOSE: 10/500 MG
     Route: 048
  6. CLIMARA [Concomitant]
     Indication: HORMONE LEVEL ABNORMAL
     Route: 062
  7. HYDROCODONE [Concomitant]
     Indication: PAIN
     Dosage: DOSE: 10/500 MG
     Route: 048
  8. ZOFRAN [Concomitant]
     Indication: NAUSEA
     Route: 048

REACTIONS (6)
  - ANXIETY [None]
  - BACK PAIN [None]
  - CONSTIPATION [None]
  - DRUG INEFFECTIVE [None]
  - INAPPROPRIATE SCHEDULE OF DRUG ADMINISTRATION [None]
  - PRODUCT QUALITY ISSUE [None]
